FAERS Safety Report 25266352 (Version 1)
Quarter: 2025Q2

REPORT INFORMATION
  Report Type: Spontaneous
  Country: US (occurrence: US)
  Receive Date: 20250504
  Receipt Date: 20250504
  Transmission Date: 20250717
  Serious: No
  Sender: BAUSCH AND LOMB
  Company Number: US-BAUSCHBL-2025BNL007381

PATIENT
  Sex: Male

DRUGS (1)
  1. BESIVANCE [Suspect]
     Active Substance: BESIFLOXACIN
     Indication: Product used for unknown indication
     Route: 065

REACTIONS (4)
  - Superficial injury of eye [Unknown]
  - Condition aggravated [Unknown]
  - Product quality issue [Unknown]
  - Product deposit [Unknown]
